FAERS Safety Report 6434939-2 (Version None)
Quarter: 2009Q4

REPORT INFORMATION
  Report Type: 
  Country: None (occurrence: None)
  Receive Date: 20091109
  Receipt Date: 20091109
  Transmission Date: 20100525
  Serious: No
  Sender: FDA-Public Use
  Company Number: None

PATIENT
  Age: 27 Month
  Sex: Female
  Weight: 74.8435 kg

DRUGS (1)
  1. MIRENA [Suspect]
     Indication: CONTRACEPTION
     Dosage: 1
     Dates: start: 20070820

REACTIONS (9)
  - ALOPECIA [None]
  - CYSTITIS [None]
  - FEELING ABNORMAL [None]
  - GALACTORRHOEA [None]
  - HUNGER [None]
  - PAIN [None]
  - SKIN DISORDER [None]
  - THYROID DISORDER [None]
  - WHITE BLOOD CELL COUNT INCREASED [None]
